FAERS Safety Report 4326353-0 (Version None)
Quarter: 2004Q1

REPORT INFORMATION
  Report Type: 
  Country: None (occurrence: None)
  Receive Date: 20040329
  Receipt Date: 20040329
  Transmission Date: 20041129
  Serious: Yes (Hospitalization)
  Sender: FDA-Public Use
  Company Number: None

PATIENT
  Age: 68 Year
  Sex: Male
  Weight: 80.2867 kg

DRUGS (16)
  1. CYTOXAN [Suspect]
     Indication: MANTLE CELL LYMPHOMA
     Dosage: SEE IMAGE
     Route: 042
     Dates: start: 20040312, end: 20040317
  2. VINCRISTINE [Suspect]
  3. DOXORUBICIN 50 MG [Suspect]
  4. DEXAMETHASONE 40 MG [Suspect]
  5. VITAMIN C [Concomitant]
  6. ASPIRIN [Concomitant]
  7. ATTENOLOL [Concomitant]
  8. LASIX [Concomitant]
  9. RANITIDINE [Concomitant]
  10. GARLIC [Concomitant]
  11. SIMVASTATIN [Concomitant]
  12. TETRACYCLINE [Concomitant]
  13. SENKOT [Concomitant]
  14. VITAMIN E [Concomitant]
  15. LORAZEPAM [Concomitant]
  16. DELASETRON [Suspect]

REACTIONS (2)
  - NEUTROPENIA [None]
  - PYREXIA [None]
